FAERS Safety Report 13012409 (Version 2)
Quarter: 2016Q4

REPORT INFORMATION
  Report Type: Report from Study
  Country: US (occurrence: US)
  Receive Date: 20161209
  Receipt Date: 20161212
  Transmission Date: 20170207
  Serious: Yes (Other)
  Sender: FDA-Public Use
  Company Number: US-BAXALTA-2016BLT008997

PATIENT
  Age: 57 Year
  Sex: Female
  Weight: 90 kg

DRUGS (2)
  1. HYQVIA [Suspect]
     Active Substance: HUMAN IMMUNOGLOBULIN G\HYALURONIDASE RECOMBINANT HUMAN
     Dosage: UNK; THERAPY INITIATED
     Route: 065
     Dates: start: 201603
  2. HYQVIA [Suspect]
     Active Substance: HUMAN IMMUNOGLOBULIN G\HYALURONIDASE RECOMBINANT HUMAN
     Indication: IMMUNODEFICIENCY COMMON VARIABLE
     Dosage: 40 G, 1X A MONTH
     Route: 058
     Dates: start: 20161015

REACTIONS (10)
  - Upper respiratory tract infection [Recovering/Resolving]
  - Skin disorder [Recovered/Resolved]
  - Wheezing [Recovering/Resolving]
  - Blood glucose decreased [Recovered/Resolved]
  - Dyspnoea [Recovering/Resolving]
  - Skin striae [Not Recovered/Not Resolved]
  - Cough [Recovering/Resolving]
  - Fungal infection [Recovered/Resolved]
  - Drug dose omission [Not Recovered/Not Resolved]
  - Cystitis [Recovering/Resolving]

NARRATIVE: CASE EVENT DATE: 201503
